FAERS Safety Report 25557839 (Version 1)
Quarter: 2025Q3

REPORT INFORMATION
  Report Type: Spontaneous
  Country: KR (occurrence: KR)
  Receive Date: 20250715
  Receipt Date: 20250715
  Transmission Date: 20251020
  Serious: Yes (Death)
  Sender: PFIZER
  Company Number: KR-PFIZER INC-202500142526

PATIENT
  Age: 9 Decade

DRUGS (1)
  1. VYNDAMAX [Suspect]
     Active Substance: TAFAMIDIS
     Route: 048

REACTIONS (3)
  - Cardiac failure [Fatal]
  - Malignant neoplasm progression [Fatal]
  - Condition aggravated [Fatal]
